FAERS Safety Report 8640130 (Version 3)
Quarter: 2014Q2

REPORT INFORMATION
  Report Type: Report from Study
  Country: US (occurrence: US)
  Receive Date: 20120628
  Receipt Date: 20140626
  Transmission Date: 20141212
  Serious: Yes (Other)
  Sender: FDA-Public Use
  Company Number: US-MYLANLABS-2011S1024531

PATIENT
  Age: 43 Year
  Sex: Male

DRUGS (2)
  1. CLOZAPINE TABLETS [Suspect]
     Route: 048
     Dates: start: 1999, end: 201111
  2. CLOZAPINE TABLETS [Suspect]
     Route: 048
     Dates: start: 201111, end: 201201

REACTIONS (2)
  - Granulocytopenia [Not Recovered/Not Resolved]
  - White blood cell count decreased [Recovered/Resolved]
